FAERS Safety Report 9737179 (Version 3)
Quarter: 2013Q4

REPORT INFORMATION
  Report Type: Spontaneous
  Country: IN (occurrence: IN)
  Receive Date: 20131206
  Receipt Date: 20131218
  Transmission Date: 20140711
  Serious: Yes (Hospitalization, Other)
  Sender: FDA-Public Use
  Company Number: IN-PFIZER INC-2013345010

PATIENT
  Age: 28 Year
  Sex: Female

DRUGS (9)
  1. CEFEPIME HCL [Suspect]
     Indication: URINARY TRACT INFECTION
     Dosage: 1 GM, UNK
  2. PHENYTOIN [Suspect]
     Indication: GRAND MAL CONVULSION
     Dosage: LOADING DOSE
     Route: 065
  3. PHENYTOIN [Suspect]
     Indication: CONVULSION
     Dosage: 300 MG AT NIGHT
     Route: 065
  4. AMIKACIN [Concomitant]
     Indication: PLEURAL EFFUSION
     Dosage: 500 MG, UNK
  5. ETHAMBUTOL [Concomitant]
     Indication: PLEURAL EFFUSION
     Dosage: 800 MG, UNK
     Route: 065
  6. LEVETIRACETAM [Concomitant]
     Indication: GRAND MAL CONVULSION
     Dosage: 500 MG, 2X/DAY
     Route: 065
  7. TIGECYCLINE [Concomitant]
     Indication: ACINETOBACTER INFECTION
     Dosage: 500 MG, 2X/DAY
  8. POLYMYXINS [Concomitant]
     Indication: ACINETOBACTER INFECTION
     Dosage: 1 MU, UNK
  9. POLYMYXINS [Concomitant]
     Indication: KLEBSIELLA INFECTION

REACTIONS (21)
  - Mouth ulceration [Recovered/Resolved]
  - Rash generalised [Recovered/Resolved]
  - Skin exfoliation [Recovered/Resolved]
  - Pigmentation disorder [Recovered/Resolved]
  - Skin lesion [Recovered/Resolved]
  - Skin burning sensation [Recovered/Resolved]
  - Chills [Recovered/Resolved]
  - Erythema [Recovered/Resolved]
  - Rash [Recovered/Resolved]
  - Dermatitis [Recovered/Resolved]
  - Tinea versicolour [Recovered/Resolved]
  - Face oedema [Recovered/Resolved]
  - Skin hyperpigmentation [Recovered/Resolved]
  - Dyspepsia [Recovered/Resolved]
  - Vomiting [Recovered/Resolved]
  - Asthenia [Recovered/Resolved]
  - Stevens-Johnson syndrome [Recovered/Resolved]
  - Condition aggravated [Recovered/Resolved]
  - Pyrexia [Recovered/Resolved]
  - Pruritus [Recovered/Resolved]
  - Rash erythematous [Recovered/Resolved]
